FAERS Safety Report 25274020 (Version 7)
Quarter: 2025Q3

REPORT INFORMATION
  Report Type: Spontaneous
  Country: US (occurrence: US)
  Receive Date: 20250506
  Receipt Date: 20250923
  Transmission Date: 20251021
  Serious: Yes (Hospitalization)
  Sender: SYNDAX
  Company Number: US-SYNDAX PHARMACEUTICALS, INC.-2025US000394

PATIENT
  Age: 65 Year
  Sex: Female
  Weight: 67.587 kg

DRUGS (11)
  1. REVUFORJ [Suspect]
     Active Substance: REVUMENIB CITRATE
     Indication: Acute myeloid leukaemia
     Dosage: 110 MILLIGRAM, BID
     Route: 048
     Dates: start: 20250426
  2. REVUFORJ [Suspect]
     Active Substance: REVUMENIB CITRATE
     Dosage: 160 MILLIGRAM, BID
     Route: 048
     Dates: start: 20250426
  3. ACYCLOVIR [Concomitant]
     Active Substance: ACYCLOVIR
     Indication: Product used for unknown indication
     Route: 065
  4. ALPRAZOLAM [Concomitant]
     Active Substance: ALPRAZOLAM
     Indication: Product used for unknown indication
     Route: 065
  5. DULCOLAX (BISACODYL) [Concomitant]
     Active Substance: BISACODYL
     Indication: Product used for unknown indication
     Route: 065
  6. LOVENOX [Concomitant]
     Active Substance: ENOXAPARIN SODIUM
     Indication: Product used for unknown indication
     Route: 065
  7. MAGNESIUM [Concomitant]
     Active Substance: MAGNESIUM
     Indication: Product used for unknown indication
     Route: 065
  8. MIRALAX [Concomitant]
     Active Substance: POLYETHYLENE GLYCOL 3350
     Indication: Product used for unknown indication
     Route: 065
  9. RIBOFLAVIN [Concomitant]
     Active Substance: RIBOFLAVIN
     Indication: Product used for unknown indication
     Route: 065
  10. SENNA ALEXANDRINA WHOLE [Concomitant]
     Active Substance: SENNA ALEXANDRINA WHOLE
     Indication: Product used for unknown indication
     Route: 065
  11. VENLAFAXINE [Concomitant]
     Active Substance: VENLAFAXINE HYDROCHLORIDE
     Indication: Product used for unknown indication
     Route: 065

REACTIONS (15)
  - Confusional state [Recovering/Resolving]
  - Dizziness [Recovering/Resolving]
  - Hypoaesthesia [Recovering/Resolving]
  - Product dose omission issue [Recovering/Resolving]
  - Dyspepsia [Recovering/Resolving]
  - Headache [Recovering/Resolving]
  - Vertigo [Unknown]
  - Nausea [Recovering/Resolving]
  - Gastrooesophageal reflux disease [Recovering/Resolving]
  - Oropharyngeal pain [Recovering/Resolving]
  - Abdominal discomfort [Unknown]
  - Euphoric mood [Unknown]
  - Vulvovaginal pruritus [Unknown]
  - Medication error [Unknown]
  - Biopsy bone marrow [Recovered/Resolved]

NARRATIVE: CASE EVENT DATE: 20250630
